FAERS Safety Report 6051950-4 (Version None)
Quarter: 2009Q1

REPORT INFORMATION
  Report Type: 
  Country: None (occurrence: None)
  Receive Date: 20090122
  Receipt Date: 20090122
  Transmission Date: 20090719
  Serious: Yes (Other)
  Sender: FDA-Public Use
  Company Number: None

PATIENT
  Sex: Female
  Weight: 64.8644 kg

DRUGS (1)
  1. BUPROPION SR 150MG [Suspect]
     Indication: PREMENSTRUAL SYNDROME
     Dosage: ONE TAB PO Q DAILY PO
     Route: 048
     Dates: start: 20081212, end: 20090105

REACTIONS (4)
  - ERYTHEMA [None]
  - PRODUCT QUALITY ISSUE [None]
  - RASH [None]
  - URTICARIA [None]
